FAERS Safety Report 8201564-2 (Version None)
Quarter: 2012Q1

REPORT INFORMATION
  Report Type: 
  Country: None (occurrence: None)
  Receive Date: 20120308
  Receipt Date: 20120228
  Transmission Date: 20120608
  Serious: Yes (Hospitalization)
  Sender: FDA-Public Use
  Company Number: 1212088

PATIENT
  Age: 55 Year
  Sex: Female

DRUGS (6)
  1. PACLITAXEL [Concomitant]
  2. (NAVOBAN) [Concomitant]
  3. (RANIDIL) [Concomitant]
  4. (URBASON /00049601/) [Concomitant]
  5. CARBOPLATIN [Suspect]
     Indication: OVARIAN CANCER
     Dosage: 480 MG MILLIGRAM(S), INTRAVENOUS DRIP
     Route: 041
     Dates: start: 20111215, end: 20120222
  6. (TRIMETON /00072502/) [Concomitant]

REACTIONS (5)
  - NAUSEA [None]
  - DYSPNOEA [None]
  - HYPOTENSION [None]
  - CHILLS [None]
  - FLATULENCE [None]
